FAERS Safety Report 9594684 (Version 1)
Quarter: 2013Q4

REPORT INFORMATION
  Report Type: Spontaneous
  Country: US (occurrence: US)
  Receive Date: 20131004
  Receipt Date: 20131004
  Transmission Date: 20140711
  Serious: Yes (Other)
  Sender: FDA-Public Use
  Company Number: US-ELI_LILLY_AND_COMPANY-US201309008614

PATIENT
  Sex: Female

DRUGS (2)
  1. EFFIENT [Suspect]
     Dosage: 10 MG, UNK
  2. EFFIENT [Suspect]
     Dosage: 5 MG, UNK

REACTIONS (3)
  - Neoplasm malignant [Unknown]
  - Gastrointestinal haemorrhage [Unknown]
  - Uterine haemorrhage [Unknown]
